FAERS Safety Report 7820662-6 (Version None)
Quarter: 2011Q4

REPORT INFORMATION
  Report Type: 
  Country: None (occurrence: None)
  Receive Date: 20111018
  Receipt Date: 20111007
  Transmission Date: 20120403
  Serious: Yes (Other)
  Sender: FDA-Public Use
  Company Number: US-JNJFOC-20111005677

PATIENT
  Age: 61 Year
  Sex: Female
  Weight: 63.5 kg

DRUGS (2)
  1. LISTERINE TOTAL CARE PLUS WHITENING [Suspect]
     Indication: DENTAL DISORDER PROPHYLAXIS
     Dosage: ^A SHOT^ OR ^A LITTLE BIT FROM THE CAP^
     Route: 048
     Dates: start: 20111006, end: 20111006
  2. ANTIHYPERTENSIVES [Concomitant]
     Indication: HYPERTENSION

REACTIONS (3)
  - PRODUCT TASTE ABNORMAL [None]
  - OROPHARYNGEAL BLISTERING [None]
  - ORAL DISCOMFORT [None]
